FAERS Safety Report 6310653-9 (Version None)
Quarter: 2009Q3

REPORT INFORMATION
  Report Type: 
  Country: None (occurrence: None)
  Receive Date: 20090810
  Receipt Date: 20090729
  Transmission Date: 20100115
  Serious: Yes (Life-Threatening)
  Sender: FDA-Public Use
  Company Number: 2009AL004998

PATIENT
  Age: 30 Year
  Sex: Male

DRUGS (3)
  1. VENLAFAXINE HYDROCHLORIDE  (ATLLC) [Suspect]
     Indication: DEPRESSION
     Dosage: 150 MG; PO
     Route: 048
     Dates: start: 20090701, end: 20090704
  2. IBUPROFEN [Concomitant]
  3. VALPROIC ACID [Concomitant]

REACTIONS (1)
  - DRUG HYPERSENSITIVITY [None]
